FAERS Safety Report 9626480 (Version 1)
Quarter: 2013Q4

REPORT INFORMATION
  Report Type: Spontaneous
  Country: US (occurrence: None)
  Receive Date: 20131015
  Receipt Date: 20131015
  Transmission Date: 20140711
  Serious: Yes (Other)
  Sender: FDA-Public Use
  Company Number: None

PATIENT
  Age: 43 Year
  Sex: Female
  Weight: 62.6 kg

DRUGS (1)
  1. LIPITOR [Suspect]
     Indication: CORONARY ARTERY DISEASE
     Dosage: 1 PILL ONCE DAILY TAKEN BY MOUTH
     Route: 048
     Dates: start: 20100901, end: 20110713

REACTIONS (10)
  - Amnesia [None]
  - Anger [None]
  - Depression [None]
  - Disorientation [None]
  - Memory impairment [None]
  - Insomnia [None]
  - Asthenia [None]
  - Myalgia [None]
  - Injury [None]
  - Disturbance in attention [None]
